FAERS Safety Report 5604166-7 (Version None)
Quarter: 2008Q1

REPORT INFORMATION
  Report Type: 
  Country: None (occurrence: None)
  Receive Date: 20080123
  Receipt Date: 20080114
  Transmission Date: 20080703
  Serious: Yes (Death)
  Sender: FDA-Public Use
  Company Number: B0503196A

PATIENT
  Age: 52 Year
  Sex: Male

DRUGS (8)
  1. TRIFLUOPERAZINE HYDROCHLORIDE [Suspect]
     Dosage: ORAL
     Route: 048
  2. LAMOTRIGINE [Suspect]
     Dosage: ORAL
     Route: 048
  3. TRAMADOL HCL [Suspect]
     Dosage: ORAL
     Route: 048
  4. HYDROXYZINE [Suspect]
  5. METHOTREXATE [Suspect]
     Dosage: ORAL
     Route: 048
  6. ALPRAZOLAM [Suspect]
     Dosage: ORAL
     Route: 048
  7. CLONAZEPAM [Suspect]
     Dosage: ORAL
     Route: 048
  8. BENZODIAZEPINES (FORMULATION UNKNOWN) (BENZODIAZEPINES) [Suspect]
     Dosage: ORAL
     Route: 048

REACTIONS (3)
  - CARDIAC ARREST [None]
  - COMPLETED SUICIDE [None]
  - RESPIRATORY ARREST [None]
